FAERS Safety Report 19777903 (Version 1)
Quarter: 2021Q3

REPORT INFORMATION
  Report Type: Spontaneous
  Country: US (occurrence: US)
  Receive Date: 20210901
  Receipt Date: 20210901
  Transmission Date: 20211014
  Serious: Yes (Life-Threatening)
  Sender: FDA-Public Use
  Company Number: None

PATIENT
  Age: 67 Year
  Sex: Female
  Weight: 92.25 kg

DRUGS (1)
  1. JARDIANCE [Suspect]
     Active Substance: EMPAGLIFLOZIN
     Indication: TYPE 2 DIABETES MELLITUS
     Dosage: ?          QUANTITY:1 CAPSULE(S);?
     Route: 048
     Dates: start: 20210506, end: 20210621

REACTIONS (2)
  - Lichen sclerosus [None]
  - Fungal infection [None]

NARRATIVE: CASE EVENT DATE: 20210526
